FAERS Safety Report 14629481 (Version 1)
Quarter: 2018Q1

REPORT INFORMATION
  Report Type: Report from Study
  Country: US (occurrence: US)
  Receive Date: 20180313
  Receipt Date: 20180313
  Transmission Date: 20180509
  Serious: No
  Sender: FDA-Public Use
  Company Number: US-ROCHE-2085756

PATIENT
  Sex: Male

DRUGS (1)
  1. OCREVUS [Suspect]
     Active Substance: OCRELIZUMAB
     Indication: MULTIPLE SCLEROSIS
     Dosage: ON 19/JUN/2017, THE PATIENT WAS PRESCRIBED WITH OCRELIZUMAB INFUSION 300 MG ON DAY 1 AND THEN 300 MG
     Route: 065
     Dates: start: 20180222

REACTIONS (1)
  - Upper respiratory tract infection [Not Recovered/Not Resolved]
